FAERS Safety Report 21752628 (Version 1)
Quarter: 2022Q4

REPORT INFORMATION
  Report Type: Spontaneous
  Country: US (occurrence: US)
  Receive Date: 20221220
  Receipt Date: 20221220
  Transmission Date: 20230112
  Serious: Yes (Hospitalization, Other)
  Sender: FDA-Public Use
  Company Number: US-TAKEDA-2022TUS096980

PATIENT
  Sex: Female

DRUGS (2)
  1. .ALPHA.1-PROTEINASE INHIBITOR HUMAN [Suspect]
     Active Substance: .ALPHA.1-PROTEINASE INHIBITOR HUMAN
     Indication: Pneumothorax
     Dosage: UNK UNK, 1/WEEK
     Route: 065
  2. .ALPHA.1-PROTEINASE INHIBITOR HUMAN [Suspect]
     Active Substance: .ALPHA.1-PROTEINASE INHIBITOR HUMAN
     Indication: Pneumothorax
     Dosage: UNK UNK, 1/WEEK
     Route: 065

REACTIONS (2)
  - Pneumothorax [Unknown]
  - Product use in unapproved indication [Unknown]
